FAERS Safety Report 21436229 (Version 2)
Quarter: 2022Q4

REPORT INFORMATION
  Report Type: Spontaneous
  Country: DE (occurrence: DE)
  Receive Date: 20221010
  Receipt Date: 20221013
  Transmission Date: 20230113
  Serious: Yes (Other)
  Sender: FDA-Public Use
  Company Number: DE-NOVARTISPH-NVSC2022DE223914

PATIENT
  Age: 67 Year
  Sex: Female
  Weight: 55 kg

DRUGS (1)
  1. TOPOTECAN [Suspect]
     Active Substance: TOPOTECAN HYDROCHLORIDE
     Indication: Neuroendocrine breast tumour
     Dosage: UNK, ONCE/SINGLE (UNK, IN MONTH 26)
     Route: 065

REACTIONS (5)
  - Neuroendocrine breast tumour [Unknown]
  - Metastases to bone [Unknown]
  - Metastases to thyroid [Unknown]
  - Malignant neoplasm progression [Unknown]
  - Product use in unapproved indication [Unknown]
